FAERS Safety Report 4336888-2 (Version None)
Quarter: 2004Q2

REPORT INFORMATION
  Report Type: 
  Country: None (occurrence: None)
  Receive Date: 20040407
  Receipt Date: 20040319
  Transmission Date: 20050107
  Serious: Yes (Hospitalization)
  Sender: FDA-Public Use
  Company Number: USA040362052

PATIENT
  Age: 71 Year
  Sex: Female

DRUGS (3)
  1. HUMULIN L [Suspect]
  2. REGULAR INSULIN [Suspect]
     Dosage: 12 U DAY
  3. LENTE ILETIN II (PORK) [Suspect]
     Dosage: 19 U DAY

REACTIONS (6)
  - BLOOD GLUCOSE INCREASED [None]
  - DRUG INEFFECTIVE [None]
  - DRUG INTOLERANCE [None]
  - FEELING ABNORMAL [None]
  - NEUROPATHY [None]
  - SURGERY [None]
